FAERS Safety Report 14133751 (Version 1)
Quarter: 2017Q4

REPORT INFORMATION
  Report Type: Spontaneous
  Country: US (occurrence: US)
  Receive Date: 20171026
  Receipt Date: 20171026
  Transmission Date: 20180321
  Serious: No
  Sender: FDA-Public Use
  Company Number: US-BAUSCH-BL-2016-013911

PATIENT
  Age: 44 Year
  Sex: Male

DRUGS (2)
  1. VITAMIN B12 [Concomitant]
     Active Substance: CYANOCOBALAMIN
     Indication: VITAMIN SUPPLEMENTATION
     Dates: start: 2014
  2. JUBLIA [Suspect]
     Active Substance: EFINACONAZOLE
     Indication: ONYCHOMYCOSIS
     Dosage: 1 APPLICATION TO THE LEFT BIG TOENAIL DAILY
     Route: 061
     Dates: start: 201510

REACTIONS (2)
  - Nail discolouration [Not Recovered/Not Resolved]
  - Product leakage [Unknown]

NARRATIVE: CASE EVENT DATE: 2016
